FAERS Safety Report 9855525 (Version 1)
Quarter: 2014Q1

REPORT INFORMATION
  Report Type: Spontaneous
  Country: DE (occurrence: DE)
  Receive Date: 20140130
  Receipt Date: 20140130
  Transmission Date: 20141002
  Serious: Yes (Hospitalization)
  Sender: FDA-Public Use
  Company Number: DE-UCBSA-111118

PATIENT
  Sex: Male
  Weight: 42 kg

DRUGS (1)
  1. EQUASYM RETARD [Suspect]
     Indication: ATTENTION DEFICIT/HYPERACTIVITY DISORDER
     Route: 048
     Dates: start: 201311, end: 201312

REACTIONS (3)
  - Diarrhoea [Not Recovered/Not Resolved]
  - Lactose intolerance [Unknown]
  - Fructose intolerance [Unknown]
